FAERS Safety Report 8520099-0 (Version None)
Quarter: 2012Q3

REPORT INFORMATION
  Report Type: 
  Country: None (occurrence: None)
  Receive Date: 20120719
  Receipt Date: 20120713
  Transmission Date: 20120928
  Serious: Yes (Death, Hospitalization)
  Sender: FDA-Public Use
  Company Number: BE-TEVA-346715USA

PATIENT
  Sex: Female
  Weight: 65 kg

DRUGS (10)
  1. ACYCLOVIR [Concomitant]
     Dosage: 800 MILLIGRAM;
  2. ANASTROZOLE [Concomitant]
  3. PREDNISOLONE [Suspect]
     Dosage: 100 DOSAGE FORMS;
     Dates: start: 20120622
  4. ATORVASTATIN CALCIUM [Concomitant]
     Dosage: 40 MILLIGRAM;
  5. PREGABALIN [Concomitant]
     Dosage: 150 MILLIGRAM;
  6. TREANDA [Suspect]
     Route: 042
     Dates: start: 20120621
  7. DOMPERIDONE [Concomitant]
     Dosage: AS NEEDED
  8. OMEPRAZOLE [Concomitant]
     Dosage: 20 MILLIGRAM;
  9. ONDANSETRON [Concomitant]
  10. BISOPROLOL FUMARATE [Concomitant]
     Dosage: 2.5 MILLIGRAM;

REACTIONS (8)
  - DEHYDRATION [None]
  - MUSCULAR WEAKNESS [None]
  - DECREASED APPETITE [None]
  - CARDIAC FAILURE [None]
  - ASTHENIA [None]
  - MULTI-ORGAN FAILURE [None]
  - ATRIAL FIBRILLATION [None]
  - SEPSIS [None]
